FAERS Safety Report 18037550 (Version 8)
Quarter: 2020Q4

REPORT INFORMATION
  Report Type: Report from Study
  Country: US (occurrence: US)
  Receive Date: 20200717
  Receipt Date: 20201119
  Transmission Date: 20210113
  Serious: Yes (Other)
  Sender: FDA-Public Use
  Company Number: US-PFIZER INC-2020272331

PATIENT
  Age: 65 Year
  Sex: Female

DRUGS (3)
  1. IBRANCE [Suspect]
     Active Substance: PALBOCICLIB
     Dosage: 125 MG, CYCLIC (DAILY FOR 21 DAYS ON AND 7 DAYS OFF)
     Route: 048
     Dates: start: 20201012, end: 202010
  2. FASLODEX [Concomitant]
     Active Substance: FULVESTRANT
     Dosage: UNK
     Route: 030
  3. IBRANCE [Suspect]
     Active Substance: PALBOCICLIB
     Indication: BREAST CANCER FEMALE
     Dosage: 125 MG, CYCLIC (DAILY FOR 21 DAYS ON AND 7 DAYS OFF)
     Route: 048
     Dates: start: 20200713, end: 2020

REACTIONS (13)
  - Feeling abnormal [Unknown]
  - Fatigue [Not Recovered/Not Resolved]
  - Alopecia [Unknown]
  - Laboratory test abnormal [Unknown]
  - Back pain [Unknown]
  - White blood cell count decreased [Unknown]
  - Constipation [Unknown]
  - Tumour marker increased [Unknown]
  - Abdominal pain [Unknown]
  - Neoplasm progression [Unknown]
  - Somnolence [Unknown]
  - Neuropathy peripheral [Unknown]
  - Hypersomnia [Unknown]

NARRATIVE: CASE EVENT DATE: 2020
